FAERS Safety Report 5424545-0 (Version None)
Quarter: 2007Q3

REPORT INFORMATION
  Report Type: 
  Country: None (occurrence: None)
  Receive Date: 20070727
  Receipt Date: 20070430
  Transmission Date: 20080115
  Serious: No
  Sender: FDA-Public Use
  Company Number: 263274

PATIENT
  Age: 57 Year
  Sex: Female

DRUGS (4)
  1. LEVEMIR [Suspect]
     Indication: TYPE 2 DIABETES MELLITUS
     Dosage: 80 IU, QD, SUBCUTANEOUS ; 150 IU, QD, SUBCUTANEOUS ; 224 IU, QD, SUBCUTANEOUS
     Route: 058
     Dates: start: 20070101, end: 20070101
  2. LEVEMIR [Suspect]
     Indication: TYPE 2 DIABETES MELLITUS
     Dosage: 80 IU, QD, SUBCUTANEOUS ; 150 IU, QD, SUBCUTANEOUS ; 224 IU, QD, SUBCUTANEOUS
     Route: 058
     Dates: start: 20070101, end: 20070101
  3. LEVEMIR [Suspect]
     Indication: TYPE 2 DIABETES MELLITUS
     Dosage: 80 IU, QD, SUBCUTANEOUS ; 150 IU, QD, SUBCUTANEOUS ; 224 IU, QD, SUBCUTANEOUS
     Route: 058
     Dates: start: 20070101
  4. ASPIRIN [Suspect]
     Indication: ILL-DEFINED DISORDER
     Dosage: ORAL
     Route: 048

REACTIONS (4)
  - INJECTION SITE BRUISING [None]
  - INJECTION SITE ERYTHEMA [None]
  - INJECTION SITE SWELLING [None]
  - INJECTION SITE WARMTH [None]
